FAERS Safety Report 5808826-4 (Version None)
Quarter: 2008Q3

REPORT INFORMATION
  Report Type: 
  Country: None (occurrence: None)
  Receive Date: 20080714
  Receipt Date: 20080709
  Transmission Date: 20090109
  Serious: Yes (Death)
  Sender: FDA-Public Use
  Company Number: B0528435A

PATIENT
  Age: 63 Year
  Sex: Male

DRUGS (1)
  1. ARRANON [Suspect]
     Dosage: 2000MG PER DAY
     Route: 042
     Dates: start: 20080623, end: 20080627

REACTIONS (1)
  - PULMONARY HAEMORRHAGE [None]
